FAERS Safety Report 6022387-9 (Version None)
Quarter: 2008Q4

REPORT INFORMATION
  Report Type: 
  Country: None (occurrence: None)
  Receive Date: 20081223
  Receipt Date: 20081223
  Transmission Date: 20090506
  Serious: Yes (Hospitalization)
  Sender: FDA-Public Use
  Company Number: None

PATIENT
  Age: 49 Year
  Sex: Male
  Weight: 78.29 kg

DRUGS (1)
  1. VITAMIN K [Suspect]
     Indication: INTERNATIONAL NORMALISED RATIO INCREASED
     Dosage: 10 MG ONCE IV BOLUS
     Route: 040
     Dates: start: 20081214, end: 20081214

REACTIONS (2)
  - ANAPHYLACTIC REACTION [None]
  - LOSS OF CONSCIOUSNESS [None]
